FAERS Safety Report 4509385-9 (Version None)
Quarter: 2004Q4

REPORT INFORMATION
  Report Type: 
  Country: None (occurrence: None)
  Receive Date: 20041025
  Receipt Date: 20040625
  Transmission Date: 20050328
  Serious: Yes (Other)
  Sender: FDA-Public Use
  Company Number: US-JNJFOC-20040608077

PATIENT
  Age: 49 Year
  Sex: Female

DRUGS (7)
  1. INFLIXIMAB (INFLIXIMAB, RECOMBINANT) LYOPHILIZED POWDER [Suspect]
     Indication: RHEUMATOID ARTHRITIS
     Dosage: INTRAVENOUS
     Route: 042
     Dates: start: 20020114
  2. CALCIUM (TABLETS) CALCIUM [Concomitant]
  3. FOSAMAX [Concomitant]
  4. MULTIVITAMIN ( ) MULTIVITAMINS [Concomitant]
  5. RIDAURA [Concomitant]
  6. VIOXX [Concomitant]
  7. VITAMIN E [Concomitant]

REACTIONS (1)
  - BRONCHITIS [None]
